FAERS Safety Report 9015023 (Version 3)
Quarter: 2013Q1

REPORT INFORMATION
  Report Type: Spontaneous
  Country: US (occurrence: US)
  Receive Date: 20130116
  Receipt Date: 20130321
  Transmission Date: 20140127
  Serious: Yes (Other)
  Sender: FDA-Public Use
  Company Number: US-AMGEN-USASP2013001858

PATIENT
  Age: 73 Year
  Sex: Male
  Weight: 89 kg

DRUGS (4)
  1. XGEVA [Suspect]
     Indication: METASTASIS
     Dosage: 120 UNK, QMO
     Route: 058
     Dates: start: 20110303, end: 20120113
  2. ZOLEDRONIC ACID [Concomitant]
     Indication: METASTASES TO BONE
     Dosage: 4 MG, QMO
     Route: 042
     Dates: start: 20050707, end: 20101202
  3. ZOLADEX                            /00732101/ [Concomitant]
     Dosage: 10.8 MG, Q3MO
     Route: 030
  4. DOCETAXEL [Concomitant]
     Dosage: 160 UNK, UNK
     Route: 042
     Dates: start: 20090810

REACTIONS (2)
  - Exposed bone in jaw [Not Recovered/Not Resolved]
  - Osteonecrosis of jaw [Unknown]
